FAERS Safety Report 9271899 (Version 2)
Quarter: 2013Q2

REPORT INFORMATION
  Report Type: Spontaneous
  Country: JO (occurrence: JO)
  Receive Date: 20130506
  Receipt Date: 20130514
  Transmission Date: 20140414
  Serious: Yes (Hospitalization)
  Sender: FDA-Public Use
  Company Number: JO-NOVOPROD-377104

PATIENT
  Age: 2 Year
  Sex: Male
  Weight: 8.7 kg

DRUGS (1)
  1. NORDITROPIN [Suspect]
     Indication: GROWTH HORMONE DEFICIENCY
     Dosage: 1.3 IU, QD (4 CLICKS)
     Route: 058
     Dates: start: 20130418

REACTIONS (1)
  - Fluid retention [Recovered/Resolved]
